FAERS Safety Report 9181233 (Version 1)
Quarter: 2013Q1

REPORT INFORMATION
  Report Type: Spontaneous
  Country: US (occurrence: US)
  Receive Date: 20130322
  Receipt Date: 20130322
  Transmission Date: 20140127
  Serious: No
  Sender: FDA-Public Use
  Company Number: US-MYLANLABS-2012S1021957

PATIENT
  Age: 52 Year
  Sex: Male

DRUGS (5)
  1. EMSAM [Suspect]
     Indication: ANXIETY
     Dosage: Q24H
     Route: 062
  2. EMSAM [Suspect]
     Indication: DEPRESSION
     Dosage: Q24H
     Route: 062
  3. EMSAM [Suspect]
     Indication: ANXIETY
     Dosage: Q24H
     Route: 062
     Dates: end: 20121015
  4. EMSAM [Suspect]
     Indication: DEPRESSION
     Dosage: Q24H
     Route: 062
     Dates: end: 20121015
  5. XANAX [Concomitant]
     Indication: ANXIETY

REACTIONS (2)
  - Wrong technique in drug usage process [Not Recovered/Not Resolved]
  - Dizziness [Not Recovered/Not Resolved]
